FAERS Safety Report 5926936-8 (Version None)
Quarter: 2008Q4

REPORT INFORMATION
  Report Type: 
  Country: None (occurrence: None)
  Receive Date: 20081022
  Receipt Date: 20081015
  Transmission Date: 20090506
  Serious: Yes (Hospitalization, Other)
  Sender: FDA-Public Use
  Company Number: US-ABBOTT-08P-163-0482497-00

PATIENT
  Sex: Female

DRUGS (2)
  1. VICODIN HP [Suspect]
     Indication: SCIATICA
  2. COPAXONE [Suspect]
     Indication: MULTIPLE SCLEROSIS
     Route: 058
     Dates: start: 20060217

REACTIONS (2)
  - DETOXIFICATION [None]
  - DRUG INEFFECTIVE [None]
